FAERS Safety Report 5531760-4 (Version None)
Quarter: 2008Q1

REPORT INFORMATION
  Report Type: 
  Country: None (occurrence: None)
  Receive Date: 20071128
  Receipt Date: 20071128
  Transmission Date: 20080703
  Serious: Yes (Other)
  Sender: FDA-Public Use
  Company Number: None

PATIENT
  Age: 9 Year
  Sex: Male
  Weight: 27.5 kg

DRUGS (3)
  1. CEFTRIAXONE SODIUM [Suspect]
     Indication: LYME DISEASE
     Dosage: 2700MG Q 24 HOURS IV
     Route: 042
     Dates: start: 20071026, end: 20071104
  2. CEFTRIAXONE SODIUM [Suspect]
     Indication: MENINGITIS
     Dosage: 2700MG Q 24 HOURS IV
     Route: 042
     Dates: start: 20071026, end: 20071104
  3. CEFOTAXIME SODIUM [Suspect]
     Dosage: 1500MG Q 8 HOURS IV X 1 DOSE ONLY
     Route: 042
     Dates: start: 20071105

REACTIONS (4)
  - ARTHRALGIA [None]
  - HYPERREFLEXIA [None]
  - INFUSION RELATED REACTION [None]
  - MUSCLE TIGHTNESS [None]
